FAERS Safety Report 9137424 (Version 1)
Quarter: 2013Q1

REPORT INFORMATION
  Report Type: Spontaneous
  Country: US (occurrence: US)
  Receive Date: 20130219
  Receipt Date: 20130219
  Transmission Date: 20140127
  Serious: No
  Sender: FDA-Public Use
  Company Number: US-BRISTOL-MYERS SQUIBB COMPANY-16819484

PATIENT
  Age: 63 Year
  Sex: Female
  Weight: 74.83 kg

DRUGS (2)
  1. ORENCIA [Suspect]
     Indication: RHEUMATOID ARTHRITIS
     Dosage: LAST DATE OF INFUSION: 26JUL2012?AFTER THE EVERY TWO WEEKS FOR LOADING DOSES, THEN BECOMES MONTHLY
     Route: 042
     Dates: start: 20120628
  2. IBUPROFEN [Concomitant]

REACTIONS (1)
  - Rheumatoid arthritis [Unknown]
